FAERS Safety Report 7198444-0 (Version None)
Quarter: 2010Q4

REPORT INFORMATION
  Report Type: 
  Country: None (occurrence: None)
  Receive Date: 20101227
  Receipt Date: 20101215
  Transmission Date: 20110411
  Serious: Yes (Hospitalization)
  Sender: FDA-Public Use
  Company Number: PHHY2010AR85507

PATIENT
  Sex: Female

DRUGS (1)
  1. RASILEZ [Suspect]
     Indication: BLOOD PRESSURE ABNORMAL
     Dosage: 300 (1 TABLET DAILY)
     Route: 048

REACTIONS (2)
  - INFECTION [None]
  - THYROIDECTOMY [None]
